FAERS Safety Report 13554555 (Version 3)
Quarter: 2017Q2

REPORT INFORMATION
  Report Type: Report from Study
  Country: UY (occurrence: UY)
  Receive Date: 20170517
  Receipt Date: 20170605
  Transmission Date: 20170830
  Serious: Yes (Death, Hospitalization, Other)
  Sender: FDA-Public Use
  Company Number: UY-ASTELLAS-2017US019239

PATIENT
  Sex: Male

DRUGS (1)
  1. ERLOTINIB [Suspect]
     Active Substance: ERLOTINIB
     Indication: PRODUCT USED FOR UNKNOWN INDICATION
     Dosage: UNK, UNKNOWN FREQ.
     Route: 065
     Dates: start: 201503

REACTIONS (5)
  - Rash [Unknown]
  - Diarrhoea [Unknown]
  - Pancreatitis [Fatal]
  - Toxicity to various agents [Unknown]
  - Pain [Unknown]
